FAERS Safety Report 4924885-5 (Version None)
Quarter: 2006Q1

REPORT INFORMATION
  Report Type: 
  Country: None (occurrence: None)
  Receive Date: 20060227
  Receipt Date: 20050408
  Transmission Date: 20060701
  Serious: Yes (Hospitalization, Disabling, Other)
  Sender: FDA-Public Use
  Company Number: US-MERCK-0504USA01298

PATIENT
  Age: 48 Year
  Sex: Male
  Weight: 91 kg

DRUGS (1)
  1. VIOXX [Suspect]
     Indication: ARTHRALGIA
     Route: 048
     Dates: start: 20001201, end: 20030726

REACTIONS (7)
  - ANXIETY [None]
  - BLINDNESS UNILATERAL [None]
  - CATARACT [None]
  - EMOTIONAL DISTRESS [None]
  - INJURY [None]
  - OPTIC NERVE INFARCTION [None]
  - PAIN [None]
